FAERS Safety Report 6533897-X (Version None)
Quarter: 2010Q1

REPORT INFORMATION
  Report Type: 
  Country: None (occurrence: None)
  Receive Date: 20100111
  Receipt Date: 20090909
  Transmission Date: 20100710
  Serious: No
  Sender: FDA-Public Use
  Company Number: US-ABBOTT-09P-163-0593584-00

PATIENT
  Sex: Female
  Weight: 78.088 kg

DRUGS (4)
  1. VICODIN [Suspect]
     Indication: ARTHRALGIA
     Dates: start: 20070101, end: 20090501
  2. VICODIN [Suspect]
     Dates: start: 20090813, end: 20090813
  3. ARAVA [Suspect]
     Indication: RHEUMATOID ARTHRITIS
     Dates: start: 20070101, end: 20090501
  4. MAXZIDE [Concomitant]
     Indication: HYPERTENSION

REACTIONS (7)
  - ABASIA [None]
  - CYSTITIS [None]
  - DRUG EFFECT INCREASED [None]
  - DRUG INEFFECTIVE [None]
  - EUPHORIC MOOD [None]
  - NAUSEA [None]
  - VOMITING [None]
